FAERS Safety Report 6566348-X (Version None)
Quarter: 2010Q1

REPORT INFORMATION
  Report Type: 
  Country: None (occurrence: None)
  Receive Date: 20100202
  Receipt Date: 20100122
  Transmission Date: 20100710
  Serious: Yes (Hospitalization, Other)
  Sender: FDA-Public Use
  Company Number: CA-ELI_LILLY_AND_COMPANY-CA201001005269

PATIENT
  Age: 88 Year
  Sex: Female

DRUGS (10)
  1. FORTEO [Suspect]
     Indication: OSTEOPOROSIS
     Dosage: 20 UG, DAILY (1/D)
     Route: 058
     Dates: start: 20081118, end: 20090421
  2. FORTEO [Suspect]
     Dosage: 20 UG, DAILY (1/D)
     Route: 058
     Dates: start: 20090517, end: 20100104
  3. PLAVIX [Concomitant]
  4. TIAZAC                             /00489702/ [Concomitant]
  5. PANTOPRAZOLE [Concomitant]
  6. DILTIAZEM HCL [Concomitant]
  7. ISOSORBIDE MONONITRATE [Concomitant]
  8. METOCLOPRAMIDE [Concomitant]
  9. LORAZEPAM [Concomitant]
  10. TYLENOL (CAPLET) [Concomitant]

REACTIONS (2)
  - CEREBROVASCULAR ACCIDENT [None]
  - VISUAL ACUITY REDUCED [None]
